FAERS Safety Report 8167711-6 (Version None)
Quarter: 2012Q1

REPORT INFORMATION
  Report Type: 
  Country: None (occurrence: None)
  Receive Date: 20120227
  Receipt Date: 20120220
  Transmission Date: 20120608
  Serious: Yes (Death, Hospitalization)
  Sender: FDA-Public Use
  Company Number: DE-ROCHE-1017426

PATIENT
  Sex: Female
  Weight: 84 kg

DRUGS (15)
  1. PACLITAXEL [Suspect]
     Indication: BREAST CANCER
     Route: 042
     Dates: start: 20111114, end: 20111128
  2. DEXAMETHASONE [Concomitant]
     Dates: start: 20111122, end: 20111123
  3. LEVOTHYROXINE SODIUM [Concomitant]
     Route: 048
  4. GRANISETRON [Concomitant]
     Dates: start: 20111121, end: 20111121
  5. CLEMASTINE FUMARATE [Concomitant]
     Dates: start: 20111121, end: 20111121
  6. EMEND [Concomitant]
     Dates: start: 20111121, end: 20111121
  7. RAMIPRIL [Concomitant]
     Route: 048
  8. FLUTICASONE PROPIONATE/SALMETEROL [Concomitant]
     Dosage: 100/500UG
  9. GRANISETRON [Concomitant]
     Dates: start: 20111129, end: 20111204
  10. ATENOLOL [Concomitant]
     Route: 048
  11. DEXAMETHASONE [Concomitant]
     Dates: start: 20111129, end: 20111204
  12. XELODA [Suspect]
     Indication: BREAST CANCER
     Route: 048
     Dates: start: 20111114
  13. DEXAMETHASONE [Concomitant]
     Dates: start: 20111121, end: 20111121
  14. RAMIPRIL [Concomitant]
     Dosage: 5/25MG
     Route: 048
  15. EMEND [Concomitant]
     Dates: start: 20111122, end: 20111123

REACTIONS (3)
  - DIHYDROPYRIMIDINE DEHYDROGENASE DEFICIENCY [None]
  - DRUG INTOLERANCE [None]
  - MULTI-ORGAN FAILURE [None]
